FAERS Safety Report 9491502 (Version 2)
Quarter: 2013Q1

REPORT INFORMATION
  Report Type: Not Available
  Country: US (occurrence: US)
  Receive Date: 20121219
  Receipt Date: 20121219
  Transmission Date: 20140127
  Serious: Yes (Hospitalization)
  Sender: FDA-Public Use
  Company Number: US-LUNDBECK-DKLU1061729

PATIENT
  Age: 11 None
  Sex: Male
  Weight: 24 kg

DRUGS (8)
  1. CLOBAZAM [Suspect]
     Indication: LENNOX-GASTAUT SYNDROME
     Route: 048
     Dates: start: 20091215
  2. CLOBAZAM [Suspect]
     Route: 048
     Dates: start: 20070515, end: 20091215
  3. CLOBAZAM [Suspect]
     Route: 048
     Dates: start: 20090515, end: 20091215
  4. CLOBAZAM [Suspect]
     Dates: start: 20060614
  5. LEUCOVORIN [Concomitant]
     Indication: CONVULSION
     Route: 048
     Dates: start: 200412
  6. BANZEL [Concomitant]
     Indication: CONVULSION
     Route: 048
     Dates: start: 20090616
  7. TOPAMAX [Concomitant]
     Indication: CONVULSION
     Route: 048
     Dates: start: 20030217
  8. B6 [Concomitant]
     Indication: CONVULSION
     Route: 048
     Dates: start: 200406

REACTIONS (1)
  - Convulsion [Recovered/Resolved]
